FAERS Safety Report 7032206-X (Version None)
Quarter: 2010Q4

REPORT INFORMATION
  Report Type: 
  Country: None (occurrence: None)
  Receive Date: 20101007
  Receipt Date: 20100901
  Transmission Date: 20110411
  Serious: Yes (Hospitalization)
  Sender: FDA-Public Use
  Company Number: DE-BRISTOL-MYERS SQUIBB COMPANY-15276298

PATIENT
  Age: 68 Year
  Sex: Male
  Weight: 80 kg

DRUGS (4)
  1. CETUXIMAB [Suspect]
     Indication: HEAD AND NECK CANCER
     Dosage: MOST RECENT INFUSION ON 23AUG2010.STRENGTH 5MG/ML NO OF INF: 16
     Route: 042
     Dates: start: 20100426
  2. CISPLATIN [Suspect]
     Indication: HEAD AND NECK CANCER
     Dosage: MOST RECENT INFUSION ON	09AUG20210 NO OF INF: 6
     Route: 042
     Dates: start: 20100426
  3. CILENGITIDE [Suspect]
     Indication: HEAD AND NECK CANCER
     Dosage: MOST RECENT INFUSION ON 23AUG2010 NO OF INF: 34
     Route: 042
     Dates: start: 20100426
  4. FLUOROURACIL [Suspect]
     Indication: HEAD AND NECK CANCER
     Dosage: MOST RECENT INFUSION ON 09AUG2010.CONTINOUS INFUSION FROM DAY 1 TO DAY 4 OF CYCLE NO OF INF:6
     Route: 042
     Dates: start: 20100426

REACTIONS (2)
  - RENAL FAILURE CHRONIC [None]
  - VISUAL ACUITY REDUCED [None]
